FAERS Safety Report 22533623 (Version 1)
Quarter: 2023Q2

REPORT INFORMATION
  Report Type: Spontaneous
  Country: None (occurrence: US)
  Receive Date: 20230608
  Receipt Date: 20230608
  Transmission Date: 20230722
  Serious: No
  Sender: FDA-Public Use
  Company Number: US-DENDREON PHARMACEUTICAL LLC-2022DEN000357

PATIENT

DRUGS (1)
  1. PROVENGE [Suspect]
     Active Substance: SIPULEUCEL-T
     Indication: Prostate cancer metastatic
     Dosage: DOSE 1
     Route: 042
     Dates: start: 20221118, end: 20221118

REACTIONS (3)
  - Chills [Recovered/Resolved]
  - Chills [Recovered/Resolved]
  - Nasopharyngitis [Recovering/Resolving]

NARRATIVE: CASE EVENT DATE: 20221118
